FAERS Safety Report 14686041 (Version 2)
Quarter: 2018Q2

REPORT INFORMATION
  Report Type: Spontaneous
  Country: US (occurrence: US)
  Receive Date: 20180327
  Receipt Date: 20180413
  Transmission Date: 20180711
  Serious: No
  Sender: FDA-Public Use
  Company Number: US-PFIZER INC-2018120765

PATIENT
  Age: 53 Year
  Sex: Female

DRUGS (1)
  1. GENOTROPIN MQ [Suspect]
     Active Substance: SOMATROPIN
     Dosage: 0.9 MG, UNK

REACTIONS (8)
  - Flat affect [Unknown]
  - Condition aggravated [Unknown]
  - Fatigue [Unknown]
  - Lethargy [Unknown]
  - Alopecia [Unknown]
  - Peripheral swelling [Unknown]
  - Memory impairment [Unknown]
  - Drug prescribing error [Unknown]
